FAERS Safety Report 5074130-8 (Version None)
Quarter: 2006Q3

REPORT INFORMATION
  Report Type: 
  Country: None (occurrence: None)
  Receive Date: 20060808
  Receipt Date: 20060801
  Transmission Date: 20061208
  Serious: Yes (Hospitalization)
  Sender: FDA-Public Use
  Company Number: US-BRISTOL-MYERS SQUIBB COMPANY-13461959

PATIENT
  Age: 79 Year
  Sex: Female
  Weight: 77 kg

DRUGS (3)
  1. COUMADIN [Suspect]
     Indication: HEART VALVE REPLACEMENT
  2. LIPITOR [Concomitant]
     Dosage: DURATION/THERAPY FROM:  ^A WHILE,^ AND ^STOPPED ABOUT THREE WWEKS AGO^
  3. IRON [Concomitant]
     Dates: start: 20060401

REACTIONS (6)
  - ANAEMIA [None]
  - DEHYDRATION [None]
  - DIARRHOEA [None]
  - FALL [None]
  - HAEMORRHAGE [None]
  - INFECTION [None]
